FAERS Safety Report 9299036 (Version 2)
Quarter: 2013Q2

REPORT INFORMATION
  Report Type: Spontaneous
  Country: PT (occurrence: PT)
  Receive Date: 20130520
  Receipt Date: 20130528
  Transmission Date: 20140414
  Serious: Yes (Life-Threatening)
  Sender: FDA-Public Use
  Company Number: PT-TEVA-404568ISR

PATIENT
  Age: 71 Year
  Sex: Female
  Weight: 53 kg

DRUGS (8)
  1. CARBOPLATINA TEVA 10 MG/ML SOLUTION FOR INJECTION [Suspect]
     Indication: OVARIAN CANCER
     Dosage: THE BATCH REACTION OCCURRED WHICH WAS ADMINISTERED TO 03-13-2013, 02-04-2013 AND 04-23-2013
     Route: 042
     Dates: start: 20111121, end: 20130423
  2. CARBOPLATINA TEVA 10 MG/ML SOLUTION FOR INJECTION [Suspect]
     Indication: OVARIAN CANCER
     Route: 042
     Dates: start: 20130514, end: 20130514
  3. LORAZEPAM LABESFAL [Concomitant]
     Indication: PREMEDICATION
     Dosage: 1 MILLIGRAM DAILY;
     Route: 048
     Dates: start: 20111121, end: 20130423
  4. RANITIDINA LABESFAL [Concomitant]
     Indication: PREMEDICATION
     Dosage: 50 MILLIGRAM DAILY;
     Route: 042
     Dates: start: 20111121, end: 20130423
  5. TAVIST [Concomitant]
     Indication: PREMEDICATION
     Dosage: 2 MILLIGRAM DAILY;
     Route: 042
     Dates: start: 20111121, end: 20130423
  6. ORADEXON [Concomitant]
     Indication: PREMEDICATION
     Dosage: 10 MILLIGRAM DAILY;
     Route: 042
     Dates: start: 20111121, end: 20130423
  7. PACLITAXEL [Concomitant]
     Indication: OVARIAN CANCER
     Dosage: 280 MILLIGRAM DAILY; SEVERAL COMMERCIAL BRANDS
     Route: 042
     Dates: start: 20111121, end: 20130423
  8. ONDANSETROM [Concomitant]
     Indication: PREMEDICATION
     Dosage: 8 MILLIGRAM DAILY; SEVERAL COMMERCIAL BRANDS
     Route: 042
     Dates: start: 20111121, end: 20130423

REACTIONS (4)
  - Hypotension [Recovered/Resolved]
  - Pruritus generalised [Recovered/Resolved]
  - Tremor [Recovered/Resolved]
  - Rash [Recovered/Resolved]
